FAERS Safety Report 5812771-8 (Version None)
Quarter: 2008Q3

REPORT INFORMATION
  Report Type: 
  Country: None (occurrence: None)
  Receive Date: 20080714
  Receipt Date: 20080703
  Transmission Date: 20090109
  Serious: Yes (Hospitalization)
  Sender: FDA-Public Use
  Company Number: 163-21880-08070260

PATIENT
  Age: 82 Year
  Sex: Female

DRUGS (14)
  1. REVLIMID [Suspect]
     Indication: MULTIPLE MYELOMA
     Dosage: 15 MG, OD FOR 21D, 7 OFF, ORAL; 10 MG, QD X 21 DAYS, ORAL
     Route: 048
     Dates: start: 20080515, end: 20080611
  2. REVLIMID [Suspect]
     Indication: MULTIPLE MYELOMA
     Dosage: 15 MG, OD FOR 21D, 7 OFF, ORAL; 10 MG, QD X 21 DAYS, ORAL
     Route: 048
     Dates: start: 20080703
  3. COUMADIN [Concomitant]
  4. LASIX [Concomitant]
  5. LEVOTHYROXINE SODIUM [Concomitant]
  6. ZYRTEC [Concomitant]
  7. EVISTA [Concomitant]
  8. CALCIUM (CALCIUM) [Concomitant]
  9. ZOLOFT [Concomitant]
  10. POTASSIUM CHLORIDE [Concomitant]
  11. NITRO (GLYCERYL TRINITRATE) (TABLETS) [Concomitant]
  12. ZOCOR [Concomitant]
  13. COREG [Concomitant]
  14. NEXIUM [Concomitant]

REACTIONS (8)
  - ANAEMIA [None]
  - BRAIN NATRIURETIC PEPTIDE INCREASED [None]
  - CARDIAC FAILURE CONGESTIVE [None]
  - INTERNATIONAL NORMALISED RATIO INCREASED [None]
  - PAROTID GLAND ENLARGEMENT [None]
  - PLATELET COUNT DECREASED [None]
  - PROTHROMBIN TIME PROLONGED [None]
  - WHITE BLOOD CELL COUNT DECREASED [None]
